FAERS Safety Report 6824649-1 (Version None)
Quarter: 2010Q3

REPORT INFORMATION
  Report Type: 
  Country: None (occurrence: None)
  Receive Date: 20100708
  Receipt Date: 20061106
  Transmission Date: 20110219
  Serious: No
  Sender: FDA-Public Use
  Company Number: US-PFIZER INC-2006139759

PATIENT
  Sex: Female
  Weight: 81.65 kg

DRUGS (10)
  1. CHANTIX [Suspect]
     Indication: EX-TOBACCO USER
     Route: 048
     Dates: start: 20061104
  2. DARVOCET [Concomitant]
  3. FIORINAL [Concomitant]
  4. LASIX [Concomitant]
  5. ZOCOR [Concomitant]
  6. PRILOSEC [Concomitant]
  7. TAMOXIFEN CITRATE [Concomitant]
  8. WELLBUTRIN [Concomitant]
  9. K-TAB [Concomitant]
  10. DRAMAMINE [Concomitant]

REACTIONS (1)
  - ABNORMAL DREAMS [None]
